FAERS Safety Report 19743814 (Version 1)
Quarter: 2021Q3

REPORT INFORMATION
  Report Type: Spontaneous
  Country: US (occurrence: US)
  Receive Date: 20210823
  Receipt Date: 20210823
  Transmission Date: 20211014
  Serious: Yes (Hospitalization)
  Sender: FDA-Public Use
  Company Number: None

PATIENT
  Age: 78 Year
  Sex: Male

DRUGS (9)
  1. VITAMIN D3 [Concomitant]
     Active Substance: CHOLECALCIFEROL
  2. REPATHA [Suspect]
     Active Substance: EVOLOCUMAB
     Indication: TYPE 2 DIABETES MELLITUS
     Dosage: ?          OTHER FREQUENCY:1 PEN Q 14 DAYS;?
     Route: 058
     Dates: start: 20190610
  3. GLIMEPIRIDE TAB [Concomitant]
  4. LATANOPROST. [Concomitant]
     Active Substance: LATANOPROST
  5. SODIUM BICAR [Concomitant]
  6. BUSPIRONE TAB [Concomitant]
  7. TRIAMCINOLON OINT [Concomitant]
  8. METOPROLOL. [Concomitant]
     Active Substance: METOPROLOL
  9. OLMESA MEDOX [Concomitant]

REACTIONS (1)
  - Hospitalisation [None]

NARRATIVE: CASE EVENT DATE: 20210819
